FAERS Safety Report 4885237-X (Version None)
Quarter: 2005Q4

REPORT INFORMATION
  Report Type: 
  Country: None (occurrence: None)
  Receive Date: 20051214
  Receipt Date: 20041130
  Transmission Date: 20060501
  Serious: Yes (Other)
  Sender: FDA-Public Use
  Company Number: 2004101652

PATIENT
  Age: 75 Year
  Sex: Male
  Weight: 83.9154 kg

DRUGS (10)
  1. NITROSTAT [Suspect]
     Indication: ANGINA PECTORIS
     Dosage: (0.4 MG, AS NECESSARY)
  2. GLYCERYL TRINITRATE (GLYCERYL TRINITRATE) [Suspect]
     Indication: ANGINA PECTORIS
     Dosage: NASAL
     Route: 045
  3. CLOPIDOGREL BISULFATE [Concomitant]
  4. ATENOLOL [Concomitant]
  5. ISOSORBIDE MONONITRATE [Concomitant]
  6. RABEPRAZOLE SODIUM [Concomitant]
  7. ASPIRIN [Concomitant]
  8. ATORVASTATIN CALCIUM [Concomitant]
  9. LATANOPROST [Concomitant]
  10. COSOPT [Concomitant]

REACTIONS (1)
  - ANGINA PECTORIS [None]
